FAERS Safety Report 6246281-3 (Version None)
Quarter: 2009Q2

REPORT INFORMATION
  Report Type: 
  Country: None (occurrence: None)
  Receive Date: 20090626
  Receipt Date: 20090613
  Transmission Date: 20091009
  Serious: Yes (Other)
  Sender: FDA-Public Use
  Company Number: PHHY2009BR23686

PATIENT
  Sex: Male

DRUGS (3)
  1. DIOVAN [Suspect]
     Indication: BLOOD PRESSURE
     Dosage: 80 MG, QD
     Route: 048
     Dates: start: 20090520, end: 20090610
  2. GLUCOVANCE [Concomitant]
     Indication: DIABETES MELLITUS
     Dosage: 2 TABLETS A DAY
     Route: 048
     Dates: start: 20070101
  3. TRILAX [Concomitant]
     Indication: MUSCULOSKELETAL PAIN
     Dosage: 1 TABLET IN THE MORNING AND 1 TABLET AT NIGHT
     Route: 048
     Dates: start: 20070101

REACTIONS (3)
  - BLOOD PRESSURE INCREASED [None]
  - DRUG DISPENSING ERROR [None]
  - FEELING ABNORMAL [None]
